FAERS Safety Report 8048026-3 (Version None)
Quarter: 2012Q1

REPORT INFORMATION
  Report Type: 
  Country: None (occurrence: None)
  Receive Date: 20120117
  Receipt Date: 20120109
  Transmission Date: 20120608
  Serious: Yes (Other)
  Sender: FDA-Public Use
  Company Number: SE-AMGEN-SWESP2012002246

PATIENT
  Age: 47 Year
  Sex: Female

DRUGS (3)
  1. TREO COMP                          /00182101/ [Concomitant]
     Dosage: UNK
  2. ENBREL [Suspect]
     Indication: PSORIASIS
     Dosage: 50 MG/ML, UNK
     Dates: start: 20111116
  3. ENBREL [Suspect]
     Indication: PSORIATIC ARTHROPATHY
     Dosage: UNK

REACTIONS (4)
  - VAGINAL HAEMORRHAGE [None]
  - THROAT IRRITATION [None]
  - SNORING [None]
  - DYSPNOEA [None]
